FAERS Safety Report 13675846 (Version 2)
Quarter: 2017Q3

REPORT INFORMATION
  Report Type: Report from Study
  Country: US (occurrence: BR)
  Receive Date: 20170621
  Receipt Date: 20170828
  Transmission Date: 20171127
  Serious: Yes (Death, Hospitalization, Other)
  Sender: FDA-Public Use
  Company Number: US-SUNOVION-2017SUN002625

PATIENT
  Age: 91 Year
  Sex: Female

DRUGS (1)
  1. GLYCOPYRROLATE. [Suspect]
     Active Substance: GLYCOPYRROLATE
     Indication: PRODUCT USED FOR UNKNOWN INDICATION
     Dosage: UNK, BID (MORNING AND NIGHT)
     Route: 045
     Dates: start: 2016, end: 2016

REACTIONS (13)
  - Diabetes mellitus [Fatal]
  - Skin discolouration [Unknown]
  - Blindness [Unknown]
  - Asthenia [Unknown]
  - Cerebrovascular accident [Unknown]
  - Obesity [Unknown]
  - Chronic obstructive pulmonary disease [Fatal]
  - Renal disorder [Unknown]
  - Pain [Unknown]
  - Respiratory failure [Fatal]
  - Hypertension [Fatal]
  - Multi-organ disorder [Unknown]
  - Fatigue [Unknown]

NARRATIVE: CASE EVENT DATE: 201609
